FAERS Safety Report 10602163 (Version 1)
Quarter: 2014Q4

REPORT INFORMATION
  Report Type: Spontaneous
  Country: HR (occurrence: None)
  Receive Date: 20141120
  Receipt Date: 20141120
  Transmission Date: 20150529
  Serious: Yes (Hospitalization)
  Sender: FDA-Public Use
  Company Number: VAL_03581_2014

PATIENT
  Age: 26 Year
  Sex: Female

DRUGS (2)
  1. ETHINYLESTRADIOL + GESTODENE [Suspect]
     Active Substance: ETHINYL ESTRADIOL\GESTODENE
     Indication: CONTRACEPTION
     Dosage: ([20 MG ETHINYLESTRADIOL, 75 MG OF GESTODEN])
  2. CARBAMAZEPINE (CARBAMAZEPINE) [Suspect]
     Active Substance: CARBAMAZEPINE
     Indication: EPILEPSY

REACTIONS (2)
  - Ectopic pregnancy [None]
  - Pregnancy on oral contraceptive [None]
